FAERS Safety Report 6250691-8 (Version None)
Quarter: 2009Q2

REPORT INFORMATION
  Report Type: 
  Country: None (occurrence: None)
  Receive Date: 20090626
  Receipt Date: 20090625
  Transmission Date: 20091009
  Serious: Yes (Other)
  Sender: FDA-Public Use
  Company Number: ADR5432009

PATIENT
  Age: 72 Year
  Sex: Female

DRUGS (9)
  1. SIMVASTATIN [Suspect]
     Indication: BLOOD CHOLESTEROL
     Dosage: 20 MG/DAY ORAL
     Route: 048
     Dates: start: 20090312
  2. CLARITHROMYCIN [Concomitant]
  3. ACETAMINOPHEN W/ CODEINE [Concomitant]
  4. FUROSEMIDE [Concomitant]
  5. LEVOTHYROXINE SODIUM [Concomitant]
  6. PARACETAMOL [Concomitant]
  7. ALBUTEROL [Concomitant]
  8. TIOTROPIUM BROMIDE [Concomitant]
  9. WARFARIN [Concomitant]

REACTIONS (1)
  - GOUT [None]
